FAERS Safety Report 8463127-3 (Version None)
Quarter: 2012Q2

REPORT INFORMATION
  Report Type: 
  Country: None (occurrence: None)
  Receive Date: 20120323
  Receipt Date: 20111130
  Transmission Date: 20120825
  Serious: Yes (Other)
  Sender: FDA-Public Use
  Company Number: 163-21880-11092887

PATIENT
  Age: 74 Year
  Sex: Female

DRUGS (12)
  1. DEXAMETHASONE [Concomitant]
  2. METFFORMIN HYDROCHLORIDE [Concomitant]
  3. MSM (METHYLSULFONYLMETHANE) [Concomitant]
  4. DIOVAN [Concomitant]
  5. ATENOLOL [Concomitant]
  6. METRAZOLE (METRONIDAZOLE) [Concomitant]
  7. WARFARIN SODIUM [Concomitant]
  8. ALLOPURINOL [Concomitant]
  9. OMEPRAZOLE [Concomitant]
  10. VELCADE [Concomitant]
  11. REVLIMID [Suspect]
     Indication: MULTIPLE MYELOMA
     Dosage: 10 MG, 1 IN 1 D, PO
     Route: 048
     Dates: start: 20110901, end: 20110901
  12. ALBUTEROL [Concomitant]

REACTIONS (2)
  - HYPERSENSITIVITY [None]
  - RASH PRURITIC [None]
